FAERS Safety Report 17188101 (Version 1)
Quarter: 2019Q4

REPORT INFORMATION
  Report Type: Spontaneous
  Country: FR (occurrence: FR)
  Receive Date: 20191221
  Receipt Date: 20191221
  Transmission Date: 20200122
  Serious: Yes (Hospitalization)
  Sender: FDA-Public Use
  Company Number: FR-ACCORD-166312

PATIENT
  Age: 55 Year
  Sex: Male
  Weight: 53.4 kg

DRUGS (9)
  1. ZOPICLONE [Concomitant]
     Active Substance: ZOPICLONE
  2. SERESTA [Suspect]
     Active Substance: OXAZEPAM
     Indication: ANXIETY
     Dosage: 1 - 0.5 - 1 - 0.5, STRENGTH: 50 MG, SCORED TABLET
     Route: 048
     Dates: end: 20191109
  3. ORBENINE [Concomitant]
     Active Substance: CLOXACILLIN SODIUM
  4. QUETIAPINE. [Suspect]
     Active Substance: QUETIAPINE
     Indication: PSYCHOTIC DISORDER
     Dosage: 4 DF LP50MG
     Route: 048
     Dates: start: 20190801, end: 20191106
  5. CLOPIXOL [Suspect]
     Active Substance: ZUCLOPENTHIXOL
     Indication: PSYCHOTIC DISORDER
     Dosage: STRENGTH: 2 PERCENT
     Route: 048
     Dates: start: 20191106, end: 20191109
  6. DIAZEPAM. [Concomitant]
     Active Substance: DIAZEPAM
  7. TERALITHE [Concomitant]
     Active Substance: LITHIUM CARBONATE
  8. MOVICOL [Concomitant]
     Active Substance: POLYETHYLENE GLYCOL 3350\POTASSIUM CHLORIDE\SODIUM BICARBONATE\SODIUM CHLORIDE
  9. SULFARLEM [Concomitant]
     Active Substance: ANETHOLTRITHION

REACTIONS (4)
  - Gamma-glutamyltransferase increased [Recovering/Resolving]
  - Blood alkaline phosphatase increased [Recovering/Resolving]
  - Hepatocellular injury [Recovering/Resolving]
  - Jaundice [Recovering/Resolving]

NARRATIVE: CASE EVENT DATE: 20191108
